FAERS Safety Report 6738311-7 (Version None)
Quarter: 2010Q2

REPORT INFORMATION
  Report Type: 
  Country: None (occurrence: None)
  Receive Date: 20100524
  Receipt Date: 20100517
  Transmission Date: 20101027
  Serious: Yes (Hospitalization)
  Sender: FDA-Public Use
  Company Number: CA-MERCK-1005USA02278

PATIENT
  Age: 55 Year
  Sex: Male

DRUGS (1)
  1. FOSAMAX [Suspect]
     Indication: OSTEOPOROSIS
     Route: 048
     Dates: start: 20090901

REACTIONS (3)
  - HAEMORRHAGE [None]
  - LOSS OF CONSCIOUSNESS [None]
  - SHOCK [None]
